FAERS Safety Report 14250633 (Version 1)
Quarter: 2017Q4

REPORT INFORMATION
  Report Type: Spontaneous
  Country: US (occurrence: US)
  Receive Date: 20171205
  Receipt Date: 20171205
  Transmission Date: 20180321
  Serious: No
  Sender: FDA-Public Use
  Company Number: US-ENDO PHARMACEUTICALS INC-2017-001177

PATIENT
  Sex: Female

DRUGS (2)
  1. ALPRAZOLAM TABLETS 0.25 MG [Suspect]
     Active Substance: ALPRAZOLAM
     Indication: ANXIETY
  2. ALPRAZOLAM TABLETS 0.25 MG [Suspect]
     Active Substance: ALPRAZOLAM
     Indication: SLEEP DISORDER
     Dosage: 1 DF, QHS
     Route: 048

REACTIONS (2)
  - Drug ineffective [Unknown]
  - Feeling abnormal [Unknown]
